FAERS Safety Report 13650333 (Version 1)
Quarter: 2017Q2

REPORT INFORMATION
  Report Type: Spontaneous
  Country: DE (occurrence: DE)
  Receive Date: 20170614
  Receipt Date: 20170614
  Transmission Date: 20170830
  Serious: Yes (Other)
  Sender: FDA-Public Use
  Company Number: ALCN2017DE003871

PATIENT
  Age: 92 Year
  Sex: Male

DRUGS (1)
  1. AZOPT [Suspect]
     Active Substance: BRINZOLAMIDE
     Indication: GLAUCOMA
     Dosage: 2 GTT, QD
     Route: 047

REACTIONS (10)
  - Viral upper respiratory tract infection [Recovered/Resolved]
  - Alcohol intolerance [Recovered/Resolved]
  - Rhinorrhoea [Unknown]
  - Bradycardia [Unknown]
  - Headache [Unknown]
  - Movement disorder [Unknown]
  - Nausea [Unknown]
  - Myalgia [Recovered/Resolved]
  - Cough [Recovered/Resolved]
  - Nasal congestion [Unknown]
